FAERS Safety Report 14367970 (Version 1)
Quarter: 2018Q1

REPORT INFORMATION
  Report Type: Spontaneous
  Country: US (occurrence: US)
  Receive Date: 20180109
  Receipt Date: 20180109
  Transmission Date: 20180509
  Serious: Yes (Other)
  Sender: FDA-Public Use
  Company Number: US-LPDUSPRD-20180007

PATIENT
  Age: 33 Year
  Sex: Male
  Weight: 80 kg

DRUGS (15)
  1. CELECOXIB. [Concomitant]
     Active Substance: CELECOXIB
     Dosage: UNKNOWN
     Route: 065
  2. REMIFENTANIL [Suspect]
     Active Substance: REMIFENTANIL
     Dosage: UNKNOWN
     Route: 042
  3. ONDANSETRON INJECTION (4420-01) [Concomitant]
     Active Substance: ONDANSETRON
     Dosage: UNKNOWN
     Route: 065
  4. GABAPENTIN. [Concomitant]
     Active Substance: GABAPENTIN
     Dosage: UNKNOWN
     Route: 065
  5. SUFENTANIL [Suspect]
     Active Substance: SUFENTANIL
     Dosage: UNKNOWN
     Route: 065
  6. MIDAZOLAM [Suspect]
     Active Substance: MIDAZOLAM HYDROCHLORIDE
     Dosage: UNKNOWN
     Route: 065
  7. LIDOCAINE HCL INJECTION, USP (0625-25) [Concomitant]
     Active Substance: LIDOCAINE HYDROCHLORIDE
     Dosage: UNKNOWN
     Route: 065
  8. SUCCINYLCHOLINE [Concomitant]
     Active Substance: SUCCINYLCHOLINE
     Dosage: UNKNOWN
     Route: 065
  9. ACETAMINOPHEN. [Concomitant]
     Active Substance: ACETAMINOPHEN
     Dosage: UNKNOWN
     Route: 065
  10. DEXAMETHASONE SODIUM PHOSPHATE INJECTION, USP (4901-25) [Suspect]
     Active Substance: DEXAMETHASONE SODIUM PHOSPHATE
     Dosage: UNKNOWN
     Route: 065
  11. AMITRIPTYLINE [Concomitant]
     Active Substance: AMITRIPTYLINE
     Dosage: UNKNOWN
     Route: 065
  12. KETAMINE [Suspect]
     Active Substance: KETAMINE
     Dosage: UNKNOWN
     Route: 065
  13. HYDROMORPHONE [Suspect]
     Active Substance: HYDROMORPHONE
     Dosage: UNKNOWN
     Route: 065
  14. PROPOFOL. [Concomitant]
     Active Substance: PROPOFOL
     Dosage: UNKNOWN
     Route: 042
  15. GLYCOPYRROLATE INJECTION, USP (4601-25) [Concomitant]
     Active Substance: GLYCOPYRROLATE
     Dosage: UNKNOWN
     Route: 065

REACTIONS (2)
  - Off label use [Unknown]
  - Anaesthetic complication neurological [Unknown]
